FAERS Safety Report 4498592-X (Version None)
Quarter: 2004Q4

REPORT INFORMATION
  Report Type: 
  Country: None (occurrence: None)
  Receive Date: 20041108
  Receipt Date: 20041028
  Transmission Date: 20050328
  Serious: Yes (Other)
  Sender: FDA-Public Use
  Company Number: 2004241692US

PATIENT
  Age: 57 Year
  Sex: Male
  Weight: 95.5 kg

DRUGS (3)
  1. GENOTROPIN [Suspect]
     Indication: HYPOPITUITARISM
     Dates: start: 20011016
  2. TESTOSTERONE [Concomitant]
  3. THYROID HORMONES [Concomitant]

REACTIONS (2)
  - CONDITION AGGRAVATED [None]
  - PITUITARY TUMOUR [None]
